FAERS Safety Report 7808783-5 (Version None)
Quarter: 2011Q4

REPORT INFORMATION
  Report Type: 
  Country: None (occurrence: None)
  Receive Date: 20111012
  Receipt Date: 20110929
  Transmission Date: 20120403
  Serious: Yes (Hospitalization)
  Sender: FDA-Public Use
  Company Number: PHHO2011DE05111

PATIENT
  Sex: Male
  Weight: 76 kg

DRUGS (3)
  1. TACROLIMUS [Suspect]
     Indication: LIVER TRANSPLANT
     Dosage: 8 MG, BID
     Route: 048
     Dates: start: 20091212
  2. PREDNISOLONE [Suspect]
     Indication: LIVER TRANSPLANT
     Dosage: 15 MG, QD
     Dates: start: 20091223, end: 20100304
  3. PREDNISOLONE [Suspect]
     Dosage: 5 MG, QD
     Dates: start: 20110405

REACTIONS (2)
  - OSTEOPOROSIS [None]
  - COMPRESSION FRACTURE [None]
